FAERS Safety Report 25970590 (Version 1)
Quarter: 2025Q4

REPORT INFORMATION
  Report Type: Spontaneous
  Country: CN (occurrence: CN)
  Receive Date: 20251028
  Receipt Date: 20251028
  Transmission Date: 20260118
  Serious: Yes (Hospitalization, Other)
  Sender: NOVO NORDISK
  Company Number: CN-NOVOPROD-1543366

PATIENT
  Age: 86 Year
  Sex: Male
  Weight: 80 kg

DRUGS (5)
  1. NOVOLIN R [Suspect]
     Active Substance: INSULIN HUMAN
     Indication: Type 2 diabetes mellitus
     Dosage: 7 IU, QD(AT NOON)
     Dates: start: 2006
  2. NOVOLIN R [Suspect]
     Active Substance: INSULIN HUMAN
     Indication: Type 2 diabetes mellitus
     Dosage: 19 IU, BID(MORNING AND EVENING)
     Dates: start: 2006
  3. NOVOLIN R [Suspect]
     Active Substance: INSULIN HUMAN
     Indication: Type 2 diabetes mellitus
     Dosage: 19 IU, BID( MORNING AND EVENING)
     Dates: start: 2006
  4. INSULIN ASPART\INSULIN DEGLUDEC [Suspect]
     Active Substance: INSULIN ASPART\INSULIN DEGLUDEC
     Indication: Product used for unknown indication
     Dosage: 38 IU, QD(21 UNITS IN MORNING AND 17 UNITS IN EVENING)
     Dates: start: 2023
  5. NOVORAPID [Suspect]
     Active Substance: INSULIN ASPART
     Indication: Type 2 diabetes mellitus
     Dosage: 5 IU, QD(AT NOON)
     Dates: start: 2025

REACTIONS (3)
  - Cataract [Not Recovered/Not Resolved]
  - Eye haemorrhage [Not Recovered/Not Resolved]
  - Visual acuity reduced [Not Recovered/Not Resolved]
